FAERS Safety Report 12946908 (Version 3)
Quarter: 2017Q1

REPORT INFORMATION
  Report Type: Spontaneous
  Country: US (occurrence: US)
  Receive Date: 20161116
  Receipt Date: 20170118
  Transmission Date: 20170428
  Serious: No
  Sender: FDA-Public Use
  Company Number: US-PFIZER INC-2016528417

PATIENT
  Age: 65 Year
  Sex: Male

DRUGS (1)
  1. PRISTIQ EXTENDED-RELEASE [Suspect]
     Active Substance: DESVENLAFAXINE SUCCINATE
     Indication: DEPRESSION
     Dosage: 50 MG, 1X/DAY
     Dates: start: 2010

REACTIONS (4)
  - Malaise [Recovered/Resolved]
  - Drug dose omission [Recovered/Resolved]
  - Pyrexia [Unknown]
  - Dizziness [Recovered/Resolved]
